FAERS Safety Report 4692146-8 (Version None)
Quarter: 2005Q2

REPORT INFORMATION
  Report Type: 
  Country: None (occurrence: None)
  Receive Date: 20050614
  Receipt Date: 20050525
  Transmission Date: 20051028
  Serious: Yes (Other)
  Sender: FDA-Public Use
  Company Number: TRP_0094_2005

PATIENT
  Age: 52 Year
  Sex: Male

DRUGS (2)
  1. RIBASPHERE [Suspect]
     Dosage: DF UNK PO
     Route: 048
     Dates: start: 20041011, end: 20050401
  2. PEGASYS [Suspect]
     Dosage: DF UNK SC
     Route: 058
     Dates: start: 20041011, end: 20050401

REACTIONS (4)
  - FATIGUE [None]
  - HYPERTENSION [None]
  - INSOMNIA [None]
  - SARCOIDOSIS [None]
